FAERS Safety Report 18265365 (Version 1)
Quarter: 2020Q3

REPORT INFORMATION
  Report Type: Other
  Country: US (occurrence: US)
  Receive Date: 20200914
  Receipt Date: 20200914
  Transmission Date: 20201103
  Serious: No
  Sender: FDA-Public Use
  Company Number: US-LEADIANT BIOSCIENCES INC-2020STPI000170

PATIENT
  Sex: Female

DRUGS (4)
  1. MATULANE [Suspect]
     Active Substance: PROCARBAZINE HYDROCHLORIDE
     Indication: BRAIN NEOPLASM MALIGNANT
     Dosage: 100 MG FOR 14 DAYS ON AND 14 DAYS OFF IN A 28 DAY CYCLE
     Route: 048
     Dates: start: 20191203
  2. GLEOSTINE [Concomitant]
     Active Substance: LOMUSTINE
  3. PROCHLORPERAZINE. [Concomitant]
     Active Substance: PROCHLORPERAZINE
  4. ZOFRAN [Concomitant]
     Active Substance: ONDANSETRON HYDROCHLORIDE

REACTIONS (1)
  - Pulmonary toxicity [Not Recovered/Not Resolved]
